FAERS Safety Report 14472614 (Version 1)
Quarter: 2018Q1

REPORT INFORMATION
  Report Type: Other
  Country: PT (occurrence: PT)
  Receive Date: 20180201
  Receipt Date: 20180201
  Transmission Date: 20180509
  Serious: Yes (Disabling)
  Sender: FDA-Public Use
  Company Number: PT-MACLEODS PHARMACEUTICALS US LTD-MAC2018008697

PATIENT

DRUGS (3)
  1. PANTOPRAZOLE 20 MG TABLET [Suspect]
     Active Substance: PANTOPRAZOLE
     Indication: PRODUCT USED FOR UNKNOWN INDICATION
     Dosage: 20 MG, QD, (GASTRO-RESISTANT TABLET, ENTERIC COATED TABLET)
     Route: 048
  2. VICTAN [Concomitant]
     Active Substance: ETHYL LOFLAZEPATE
     Indication: PRODUCT USED FOR UNKNOWN INDICATION
     Dosage: OCCASIONALLY
     Route: 048
  3. VALERIANA OFFICINALIS ROOT [Concomitant]
     Active Substance: VALERIAN
     Indication: PRODUCT USED FOR UNKNOWN INDICATION
     Dosage: UNK
     Route: 065

REACTIONS (2)
  - Dizziness [Unknown]
  - Tachycardia [Unknown]
